FAERS Safety Report 6479535-6 (Version None)
Quarter: 2009Q4

REPORT INFORMATION
  Report Type: 
  Country: None (occurrence: None)
  Receive Date: 20091207
  Receipt Date: 20091207
  Transmission Date: 20100525
  Serious: Yes (Life-Threatening)
  Sender: FDA-Public Use
  Company Number: None

PATIENT
  Age: 71 Year
  Sex: Male

DRUGS (2)
  1. TEMODAR [Suspect]
     Indication: BRAIN NEOPLASM
     Dosage: 200 MG DAILY PO
     Route: 048
     Dates: start: 20091103, end: 20091108
  2. WARFARIN SODIUM [Suspect]
     Indication: DEEP VEIN THROMBOSIS
     Dosage: 5 OR 7.5 MG DAILY AS DIRECTED PO
     Route: 048
     Dates: start: 20090911, end: 20091110

REACTIONS (1)
  - INTERNATIONAL NORMALISED RATIO INCREASED [None]
